FAERS Safety Report 25926892 (Version 1)
Quarter: 2025Q4

REPORT INFORMATION
  Report Type: Spontaneous
  Country: US (occurrence: US)
  Receive Date: 20251015
  Receipt Date: 20251015
  Transmission Date: 20260118
  Serious: No
  Sender: NOVARTIS
  Company Number: US-002147023-NVSC2025US155076

PATIENT
  Sex: Male

DRUGS (2)
  1. COSENTYX [Suspect]
     Active Substance: SECUKINUMAB
     Indication: Product used for unknown indication
     Dosage: UNK, QW (300MG/2ML)
     Route: 065
     Dates: start: 20250210
  2. COSENTYX [Suspect]
     Active Substance: SECUKINUMAB
     Dosage: UNK, QMO (300MG/2ML)
     Route: 065

REACTIONS (7)
  - Vomiting [Unknown]
  - Swelling [Unknown]
  - Wound complication [Unknown]
  - Product dispensing error [Unknown]
  - Needle issue [Unknown]
  - Device breakage [Unknown]
  - Device issue [Unknown]
